FAERS Safety Report 12701896 (Version 1)
Quarter: 2016Q3

REPORT INFORMATION
  Report Type: Spontaneous
  Country: US (occurrence: US)
  Receive Date: 20160831
  Receipt Date: 20160831
  Transmission Date: 20161109
  Serious: No
  Sender: FDA-Public Use
  Company Number: US-JAZZ-2016-US-007512

PATIENT
  Sex: Female

DRUGS (32)
  1. CYANOCOBALAMIN. [Concomitant]
     Active Substance: CYANOCOBALAMIN
  2. IPRATROPIUM BROMIDE. [Concomitant]
     Active Substance: IPRATROPIUM BROMIDE
  3. VITAMIN D [Concomitant]
     Active Substance: CHOLECALCIFEROL
  4. DILTIAZEM ER [Concomitant]
     Active Substance: DILTIAZEM
  5. LOVASTATIN. [Concomitant]
     Active Substance: LOVASTATIN
  6. XYREM [Suspect]
     Active Substance: SODIUM OXYBATE
     Indication: NARCOLEPSY
     Dosage: 3 G, BID
     Route: 048
     Dates: start: 200902, end: 2009
  7. XYREM [Suspect]
     Active Substance: SODIUM OXYBATE
     Dosage: DOSE ADJUSTMENTS
     Route: 048
  8. EFFEXOR XR [Concomitant]
     Active Substance: VENLAFAXINE HYDROCHLORIDE
  9. RITALIN LA [Concomitant]
     Active Substance: METHYLPHENIDATE HYDROCHLORIDE
  10. CLONAZEPAM. [Concomitant]
     Active Substance: CLONAZEPAM
  11. DRONABINOL. [Concomitant]
     Active Substance: DRONABINOL
  12. XYREM [Suspect]
     Active Substance: SODIUM OXYBATE
     Indication: CATAPLEXY
     Dosage: 3 G, BID
     Route: 048
     Dates: start: 201107, end: 201112
  13. XYREM [Suspect]
     Active Substance: SODIUM OXYBATE
     Dosage: 3 G, BID
     Route: 048
     Dates: start: 201305
  14. ESTRADIOL. [Concomitant]
     Active Substance: ESTRADIOL
  15. PULMICORT TURBUHALER [Concomitant]
     Active Substance: BUDESONIDE
  16. METFORMIN HCL [Concomitant]
     Active Substance: METFORMIN HYDROCHLORIDE
  17. TOPROL XL [Concomitant]
     Active Substance: METOPROLOL SUCCINATE
  18. ALEVE [Concomitant]
     Active Substance: NAPROXEN SODIUM
  19. ATORVASTATIN [Concomitant]
     Active Substance: ATORVASTATIN
  20. TRAMADOL HCL [Concomitant]
     Active Substance: TRAMADOL HYDROCHLORIDE
  21. NORVASC [Concomitant]
     Active Substance: AMLODIPINE BESYLATE
  22. VALTURNA [Concomitant]
     Active Substance: ALISKIREN HEMIFUMARATE\VALSARTAN
  23. HYDROCHLOROTHIAZIDE. [Concomitant]
     Active Substance: HYDROCHLOROTHIAZIDE
  24. MIRAPEX [Concomitant]
     Active Substance: PRAMIPEXOLE DIHYDROCHLORIDE
  25. TOPIRAMATE. [Concomitant]
     Active Substance: TOPIRAMATE
  26. PROMETHAZINE - DEXTROMETHORPHANE [Concomitant]
  27. IMITREX [Concomitant]
     Active Substance: SUMATRIPTAN SUCCINATE
  28. GLUCOPHAGE [Concomitant]
     Active Substance: METFORMIN HYDROCHLORIDE
  29. ASPIRIN. [Concomitant]
     Active Substance: ASPIRIN
  30. MOTRIN [Concomitant]
     Active Substance: IBUPROFEN
  31. AVAPRO [Concomitant]
     Active Substance: IRBESARTAN
  32. VISTARIL [Concomitant]
     Active Substance: HYDROXYZINE PAMOATE

REACTIONS (2)
  - Dry mouth [Unknown]
  - Drug ineffective [Unknown]
